FAERS Safety Report 5848594-3 (Version None)
Quarter: 2008Q3

REPORT INFORMATION
  Report Type: 
  Country: None (occurrence: None)
  Receive Date: 20080815
  Receipt Date: 20080815
  Transmission Date: 20090109
  Serious: Yes (Other)
  Sender: FDA-Public Use
  Company Number: None

PATIENT
  Age: 54 Year
  Sex: Female
  Weight: 81.6475 kg

DRUGS (1)
  1. ROBITUSSIN-CF A H ROBBINS [Suspect]
     Indication: NASOPHARYNGITIS
     Dosage: 2 TEASPOONS EVERY 4 HOURS PO
     Route: 048
     Dates: start: 20080814, end: 20080814

REACTIONS (4)
  - MIDDLE INSOMNIA [None]
  - NAUSEA [None]
  - RETCHING [None]
  - STOMACH DISCOMFORT [None]
